FAERS Safety Report 25818958 (Version 3)
Quarter: 2025Q4

REPORT INFORMATION
  Report Type: Spontaneous
  Country: US (occurrence: US)
  Receive Date: 20250918
  Receipt Date: 20251030
  Transmission Date: 20260117
  Serious: No
  Sender: INCYTE
  Company Number: US-EVENT-004213

PATIENT
  Age: 65 Year

DRUGS (2)
  1. OPZELURA [Suspect]
     Active Substance: RUXOLITINIB PHOSPHATE
     Indication: Vitiligo
     Dosage: UNK (VERY SPARINGLY)
     Route: 065
  2. OPZELURA [Suspect]
     Active Substance: RUXOLITINIB PHOSPHATE
     Dosage: UNK, TWICE A DAY

REACTIONS (6)
  - Vitiligo [Unknown]
  - Arthralgia [Unknown]
  - Throat clearing [Unknown]
  - Application site pain [Unknown]
  - Product distribution issue [Unknown]
  - Off label use [Unknown]
